FAERS Safety Report 21725895 (Version 4)
Quarter: 2023Q2

REPORT INFORMATION
  Report Type: Report from Study
  Country: US (occurrence: US)
  Receive Date: 20221214
  Receipt Date: 20230612
  Transmission Date: 20230722
  Serious: Yes (Other)
  Sender: FDA-Public Use
  Company Number: US-ABBVIE-4234520

PATIENT
  Age: 75 Year
  Sex: Female
  Weight: 214 kg

DRUGS (2)
  1. HUMIRA [Suspect]
     Active Substance: ADALIMUMAB
     Indication: Rheumatoid arthritis
     Dosage: CITRATE FREE, FORM STRENGTH: 40 MILLIGRAM
     Route: 058
  2. HUMIRA [Suspect]
     Active Substance: ADALIMUMAB
     Dosage: CITRATE FREE, FORM STRENGTH: 40 MILLIGRAM
     Route: 058
     Dates: start: 20210421

REACTIONS (10)
  - Breast cancer female [Recovered/Resolved]
  - Memory impairment [Recovered/Resolved]
  - Polyp [Recovering/Resolving]
  - Blister [Recovered/Resolved]
  - Large intestine polyp [Recovering/Resolving]
  - Rheumatoid arthritis [Not Recovered/Not Resolved]
  - Intestinal perforation [Unknown]
  - Diverticulitis [Unknown]
  - Large intestine perforation [Unknown]
  - General physical health deterioration [Unknown]

NARRATIVE: CASE EVENT DATE: 20221001
